FAERS Safety Report 6181458-7 (Version None)
Quarter: 2009Q2

REPORT INFORMATION
  Report Type: 
  Country: None (occurrence: None)
  Receive Date: 20090505
  Receipt Date: 20090505
  Transmission Date: 20091009
  Serious: Yes (Hospitalization)
  Sender: FDA-Public Use
  Company Number: None

PATIENT
  Age: 68 Year
  Sex: Male
  Weight: 58.9676 kg

DRUGS (12)
  1. BEVACIZUMAB 10MG/KG [Suspect]
     Indication: PANCREATIC CARCINOMA METASTATIC
     Dosage: 10MG/KG IV, D1+18 28DAY
     Route: 042
     Dates: start: 20080421
  2. GEMCITABINE HCL [Suspect]
     Indication: PANCREATIC CARCINOMA METASTATIC
     Dosage: IV DAYS 1+15 CYCLE
     Route: 042
     Dates: start: 20080421
  3. FLUOROURACIL [Suspect]
     Indication: PANCREATIC CARCINOMA METASTATIC
     Dosage: IV DAYS 1+15 CYCLE
     Route: 042
     Dates: start: 20080421
  4. ACIPHEX [Concomitant]
  5. ASPIRIN [Concomitant]
  6. CREON [Concomitant]
  7. EMLA [Concomitant]
  8. IMODIUM A-D [Concomitant]
  9. LOMOTIL [Concomitant]
  10. MULTI-VITAMIN [Concomitant]
  11. VICODIN [Concomitant]
  12. COMPAZINE [Concomitant]

REACTIONS (6)
  - ABDOMINAL ABSCESS [None]
  - ASCITES [None]
  - GASTRIC ULCER PERFORATION [None]
  - ISCHAEMIC ULCER [None]
  - RIGHT VENTRICULAR FAILURE [None]
  - TACHYCARDIA [None]
